FAERS Safety Report 4494900-4 (Version None)
Quarter: 2004Q4

REPORT INFORMATION
  Report Type: 
  Country: None (occurrence: None)
  Receive Date: 20041103
  Receipt Date: 20041018
  Transmission Date: 20050328
  Serious: Yes (Death)
  Sender: FDA-Public Use
  Company Number: ACO_0009_2004

PATIENT
  Age: 30 Year

DRUGS (2)
  1. TIZANIDINE HYDROCHLORIDE [Suspect]
     Dosage: DF
  2. VALPROIC ACID [Suspect]
     Dosage: DF

REACTIONS (2)
  - COMPLETED SUICIDE [None]
  - MULTIPLE DRUG OVERDOSE [None]
